FAERS Safety Report 4725953-3 (Version None)
Quarter: 2005Q3

REPORT INFORMATION
  Report Type: 
  Country: None (occurrence: None)
  Receive Date: 20050727
  Receipt Date: 20050721
  Transmission Date: 20060218
  Serious: Yes (Other)
  Sender: FDA-Public Use
  Company Number: US-GLAXOSMITHKLINE-A0567599A

PATIENT
  Age: 45 Year
  Sex: Female

DRUGS (4)
  1. WELLBUTRIN [Suspect]
     Indication: DEPRESSION
     Dosage: 150MG PER DAY
     Route: 048
  2. TENORMIN [Concomitant]
  3. TOPAMAX [Concomitant]
  4. KLONOPIN [Concomitant]

REACTIONS (3)
  - HYPOACUSIS [None]
  - STRESS [None]
  - SYNCOPE VASOVAGAL [None]
